FAERS Safety Report 15341607 (Version 1)
Quarter: 2018Q3

REPORT INFORMATION
  Report Type: Spontaneous
  Country: US (occurrence: US)
  Receive Date: 20180901
  Receipt Date: 20180901
  Transmission Date: 20181010
  Serious: No
  Sender: FDA-Public Use
  Company Number: US-009507513-1808USA011388

PATIENT
  Sex: Female

DRUGS (8)
  1. SUMATRIPTAN. [Concomitant]
     Active Substance: SUMATRIPTAN
  2. GANIRELIX ACETATE. [Suspect]
     Active Substance: GANIRELIX ACETATE
     Indication: INFERTILITY
     Dosage: 250 MICROGRAM, UAD
     Route: 058
     Dates: start: 20180707
  3. ALPRAZOLAM. [Concomitant]
     Active Substance: ALPRAZOLAM
  4. COPAXONE [Concomitant]
     Active Substance: GLATIRAMER ACETATE
  5. PROGESTERONE. [Concomitant]
     Active Substance: PROGESTERONE
  6. VENLAFAXINE HYDROCHLORIDE. [Concomitant]
     Active Substance: VENLAFAXINE HYDROCHLORIDE
  7. FOLLISTIM [Suspect]
     Active Substance: FOLLITROPIN
     Indication: INFERTILITY
     Dosage: 300 DF, UTD
     Route: 058
     Dates: start: 20180714
  8. ESTRADIOL. [Concomitant]
     Active Substance: ESTRADIOL

REACTIONS (1)
  - Injection site reaction [Unknown]

NARRATIVE: CASE EVENT DATE: 2018
